FAERS Safety Report 10403246 (Version 1)
Quarter: 2014Q3

REPORT INFORMATION
  Report Type: Spontaneous
  Country: FR (occurrence: FR)
  Receive Date: 20140822
  Receipt Date: 20140822
  Transmission Date: 20150326
  Serious: Yes (Life-Threatening)
  Sender: FDA-Public Use
  Company Number: FR-PFIZER INC-2014233199

PATIENT
  Age: 72 Year
  Sex: Male

DRUGS (15)
  1. PIPERACILLIN/TAZOBACTAM [Interacting]
     Active Substance: PIPERACILLIN SODIUM\TAZOBACTAM SODIUM
     Dosage: UNK
     Route: 065
     Dates: start: 20140606
  2. CORDARONE [Interacting]
     Active Substance: AMIODARONE HYDROCHLORIDE
     Dosage: 1 DF, DAILY
     Route: 048
     Dates: start: 20140613
  3. METHYLPREDNISOLONE [Concomitant]
     Active Substance: METHYLPREDNISOLONE
     Dosage: UNK
     Dates: start: 20140611
  4. ZYLORIC [Interacting]
     Active Substance: ALLOPURINOL
     Dosage: UNK
     Route: 048
     Dates: start: 2014, end: 20140610
  5. CORDARONE [Suspect]
     Active Substance: AMIODARONE HYDROCHLORIDE
     Indication: ATRIAL FIBRILLATION
     Dosage: UNK
     Route: 048
     Dates: start: 20140604, end: 20140612
  6. GLUCOR [Concomitant]
     Active Substance: ACARBOSE
  7. PREVISCAN [Interacting]
     Active Substance: FLUINDIONE
     Dosage: 15 MG, DAILY
     Route: 048
     Dates: start: 20140607, end: 20140612
  8. TARCEVA [Concomitant]
     Active Substance: ERLOTINIB HYDROCHLORIDE
  9. SPIRIVA [Concomitant]
     Active Substance: TIOTROPIUM BROMIDE MONOHYDRATE
  10. TIMOLOL [Concomitant]
     Active Substance: TIMOLOL
  11. HEMIGOXINE NATIVELLE [Concomitant]
     Active Substance: DIGOXIN
     Dosage: UNK
     Dates: start: 20140607
  12. PREVISCAN [Interacting]
     Active Substance: FLUINDIONE
     Indication: ATRIAL FIBRILLATION
     Dosage: 10 MG, DAILY
     Route: 048
     Dates: start: 20140605, end: 20140606
  13. ONBREZ BREEZHALER [Concomitant]
     Active Substance: INDACATEROL
  14. AUGMENTIN [Concomitant]
     Active Substance: AMOXICILLIN\CLAVULANATE POTASSIUM
     Dosage: UNK
     Dates: start: 20140603, end: 20140606
  15. INNOHEP [Concomitant]
     Active Substance: TINZAPARIN SODIUM
     Indication: ATRIAL FIBRILLATION
     Dosage: UNK
     Dates: start: 20140604, end: 20140606

REACTIONS (6)
  - Overdose [Recovered/Resolved]
  - Rectal haemorrhage [Recovered/Resolved]
  - Drug interaction [Recovered/Resolved]
  - Haemorrhage [Recovered/Resolved]
  - Epistaxis [Recovered/Resolved]
  - International normalised ratio increased [Recovered/Resolved]

NARRATIVE: CASE EVENT DATE: 20140613
